FAERS Safety Report 7263098-1 (Version None)
Quarter: 2011Q1

REPORT INFORMATION
  Report Type: 
  Country: None (occurrence: None)
  Receive Date: 20110130
  Receipt Date: 20101008
  Transmission Date: 20110831
  Serious: Yes (Other)
  Sender: FDA-Public Use
  Company Number: US-ABBOTT-10P-163-0677501-00

PATIENT
  Sex: Female
  Weight: 77.18 kg

DRUGS (8)
  1. CELEBREX [Concomitant]
     Indication: OSTEOARTHRITIS
     Route: 048
  2. LIPITOR [Concomitant]
     Indication: DYSLIPIDAEMIA
     Route: 048
  3. LEXAPRO [Concomitant]
     Indication: PRODUCT USED FOR UNKNOWN INDICATION
  4. LEVOTHYROXINE SODIUM [Concomitant]
     Indication: HYPOTHYROIDISM
     Route: 048
  5. RAMIPRIL [Concomitant]
     Indication: HYPERTENSION
     Route: 048
  6. HUMIRA [Suspect]
     Indication: CROHN'S DISEASE
     Route: 058
  7. CORDARONE [Concomitant]
     Indication: ATRIAL FIBRILLATION
     Route: 048
  8. DIAZIDE [Concomitant]
     Indication: PRODUCT USED FOR UNKNOWN INDICATION

REACTIONS (4)
  - SQUAMOUS CELL CARCINOMA OF SKIN [None]
  - HELMINTHIC INFECTION [None]
  - SKIN LESION [None]
  - CONTUSION [None]
